FAERS Safety Report 15135083 (Version 1)
Quarter: 2018Q3

REPORT INFORMATION
  Report Type: Spontaneous
  Country: GB (occurrence: GB)
  Receive Date: 20180712
  Receipt Date: 20180712
  Transmission Date: 20181010
  Serious: Yes (Other)
  Sender: FDA-Public Use
  Company Number: GB-TEVA-2018-GB-924115

PATIENT
  Age: 69 Year
  Sex: Female
  Weight: 104.32 kg

DRUGS (10)
  1. ANAESTHETICS NOS [Concomitant]
     Indication: HIP SURGERY
  2. ACETYLSALICYLIC ACID [Concomitant]
     Active Substance: ASPIRIN
  3. KETOPROFEN. [Concomitant]
     Active Substance: KETOPROFEN
  4. RAMIPRIL. [Concomitant]
     Active Substance: RAMIPRIL
  5. CANDESARTAN CILEXETIL. [Concomitant]
     Active Substance: CANDESARTAN CILEXETIL
  6. BISOPROLOL [Concomitant]
     Active Substance: BISOPROLOL
     Indication: HEART RATE IRREGULAR
  7. LANSOPRAZOLE. [Concomitant]
     Active Substance: LANSOPRAZOLE
  8. OXYCODONE HYDROCHLORIDE. [Suspect]
     Active Substance: OXYCODONE HYDROCHLORIDE
     Indication: PROCEDURAL PAIN
     Dosage: INITIALLY LIQUID THEN TABLET
     Route: 048
     Dates: start: 20171102, end: 20171104
  9. MORPHINE [Concomitant]
     Active Substance: MORPHINE
     Indication: PROCEDURAL PAIN
  10. FERROUS SULFATE. [Concomitant]
     Active Substance: FERROUS SULFATE

REACTIONS (9)
  - Dry mouth [Recovering/Resolving]
  - Constipation [Recovering/Resolving]
  - Skin irritation [Recovering/Resolving]
  - Malaise [Not Recovered/Not Resolved]
  - Heart rate irregular [Not Recovered/Not Resolved]
  - Eructation [Not Recovered/Not Resolved]
  - Nausea [Not Recovered/Not Resolved]
  - Muscle spasms [Not Recovered/Not Resolved]
  - Rash papular [Recovering/Resolving]

NARRATIVE: CASE EVENT DATE: 20171103
